FAERS Safety Report 6258241-7 (Version None)
Quarter: 2009Q3

REPORT INFORMATION
  Report Type: 
  Country: None (occurrence: None)
  Receive Date: 20090707
  Receipt Date: 20090629
  Transmission Date: 20100115
  Serious: Yes (Hospitalization)
  Sender: FDA-Public Use
  Company Number: US-JNJFOC-20090700163

PATIENT
  Sex: Male
  Weight: 41.7 kg

DRUGS (4)
  1. REMICADE [Suspect]
     Indication: CROHN'S DISEASE
     Route: 042
  2. METRONIDAZOLE [Concomitant]
  3. PREDNISONE [Concomitant]
  4. HUMIRA [Concomitant]

REACTIONS (3)
  - CROHN'S DISEASE [None]
  - DEHYDRATION [None]
  - DISEASE RECURRENCE [None]
